FAERS Safety Report 5673871-9 (Version None)
Quarter: 2008Q2

REPORT INFORMATION
  Report Type: 
  Country: None (occurrence: None)
  Receive Date: 20080226
  Receipt Date: 20070807
  Transmission Date: 20081010
  Serious: Yes (Other)
  Sender: FDA-Public Use
  Company Number: 510952

PATIENT

DRUGS (1)
  1. ROACUTAN (ISOTRETINOUIN) 20 MG [Suspect]
     Indication: ACNE
     Dosage: 20 MG DAILY ORAL
     Route: 048
     Dates: start: 20070115

REACTIONS (2)
  - NO ADVERSE EVENT [None]
  - PREGNANCY [None]
